FAERS Safety Report 4281592-2 (Version None)
Quarter: 2004Q1

REPORT INFORMATION
  Report Type: 
  Country: None (occurrence: None)
  Receive Date: 20040123
  Receipt Date: 20021230
  Transmission Date: 20041129
  Serious: Yes (Hospitalization)
  Sender: FDA-Public Use
  Company Number: HQ5091207NOV2002

PATIENT
  Age: 78 Year
  Sex: Female
  Weight: 59.02 kg

DRUGS (8)
  1. CORDARONE [Suspect]
     Indication: ATRIAL FIBRILLATION
     Dosage: 200 MG 1X PER 1 DAY, ORAL
     Route: 048
     Dates: start: 20020801, end: 20021106
  2. ACETYLSALICYLIC ACID SRT [Concomitant]
  3. NORVASC [Concomitant]
  4. ZOCOR [Concomitant]
  5. SYNTHROID [Concomitant]
  6. LASIX [Concomitant]
  7. ENALAPRIL MALEATE [Concomitant]
  8. PEPCID [Concomitant]

REACTIONS (1)
  - PULMONARY FIBROSIS [None]
